FAERS Safety Report 20964791 (Version 1)
Quarter: 2022Q2

REPORT INFORMATION
  Report Type: Spontaneous
  Country: NL (occurrence: NL)
  Receive Date: 20220616
  Receipt Date: 20220616
  Transmission Date: 20220721
  Serious: Yes (Hospitalization, Other)
  Sender: FDA-Public Use
  Company Number: NL-SUN PHARMACEUTICAL INDUSTRIES LTD-2022R1-340725

PATIENT
  Age: 68 Year
  Sex: Male

DRUGS (1)
  1. OXYCODONE [Suspect]
     Active Substance: OXYCODONE
     Indication: Back pain
     Dosage: UNK (90 TABLETS)
     Route: 065

REACTIONS (4)
  - Toxicity to various agents [Unknown]
  - Respiratory failure [Recovering/Resolving]
  - Loss of consciousness [Recovering/Resolving]
  - Bezoar [Recovering/Resolving]
